FAERS Safety Report 15499161 (Version 1)
Quarter: 2018Q4

REPORT INFORMATION
  Report Type: Spontaneous
  Country: FR (occurrence: FR)
  Receive Date: 20181015
  Receipt Date: 20181015
  Transmission Date: 20190205
  Serious: Yes (Life-Threatening, Other)
  Sender: FDA-Public Use
  Company Number: FR-PFIZER INC-2018414849

PATIENT
  Age: 17 Year
  Sex: Male
  Weight: 77 kg

DRUGS (9)
  1. AUGMENTIN [AMOXICILLIN TRIHYDRATE;CLAVULANATE POTASSIUM] [Concomitant]
     Indication: DENTAL OPERATION
     Route: 041
     Dates: start: 20171027
  2. PROPOFOL. [Concomitant]
     Active Substance: PROPOFOL
     Indication: DENTAL OPERATION
     Route: 041
     Dates: start: 20171027
  3. KETAMINE [Concomitant]
     Active Substance: KETAMINE
     Indication: DENTAL OPERATION
     Route: 041
     Dates: start: 20171027
  4. ARTICAINE [Concomitant]
     Active Substance: ARTICAINE
     Indication: DENTAL OPERATION
     Route: 041
     Dates: start: 20171027
  5. SUFENTANIL [Concomitant]
     Active Substance: SUFENTANIL
     Indication: DENTAL OPERATION
     Route: 041
     Dates: start: 20171027
  6. METHYLPREDNISOLONE SODIUM SUCCINATE. [Suspect]
     Active Substance: METHYLPREDNISOLONE SODIUM SUCCINATE
     Indication: DENTAL OPERATION
     Dosage: 500 MG, UNK
     Route: 041
     Dates: start: 20171027
  7. EXACYL [Concomitant]
     Active Substance: TRANEXAMIC ACID
     Indication: DENTAL OPERATION
     Route: 041
     Dates: start: 20171027
  8. NIMBEX [CISATRACURIUM BESILATE] [Concomitant]
     Indication: DENTAL OPERATION
     Route: 041
     Dates: start: 20171027
  9. MIDAZOLAM [Concomitant]
     Active Substance: MIDAZOLAM HYDROCHLORIDE
     Indication: DENTAL OPERATION
     Route: 041
     Dates: start: 20171027

REACTIONS (1)
  - Anaphylactic shock [Recovered/Resolved]

NARRATIVE: CASE EVENT DATE: 20171027
